FAERS Safety Report 20099301 (Version 1)
Quarter: 2021Q4

REPORT INFORMATION
  Report Type: Spontaneous
  Country: CN (occurrence: CN)
  Receive Date: 20211122
  Receipt Date: 20211122
  Transmission Date: 20220303
  Serious: Yes (Other)
  Sender: FDA-Public Use
  Company Number: CN-BAXTER-2021BAX036428

PATIENT
  Age: 38 Year
  Sex: Female
  Weight: 60 kg

DRUGS (5)
  1. CYCLOPHOSPHAMIDE [Suspect]
     Active Substance: CYCLOPHOSPHAMIDE
     Indication: Breast cancer female
     Dosage: CYCLOPHOSPHAMIDE (950 MG) + NORMAL SALINE (50 ML)
     Route: 042
     Dates: start: 20210827, end: 20210827
  2. SODIUM CHLORIDE [Suspect]
     Active Substance: SODIUM CHLORIDE
     Indication: Medication dilution
     Dosage: CYCLOPHOSPHAMIDE (950 MG) + NORMAL SALINE (50 ML)
     Route: 042
     Dates: start: 20210827, end: 20210827
  3. SODIUM CHLORIDE [Suspect]
     Active Substance: SODIUM CHLORIDE
     Dosage: TAXOTERE (120 MG) + NORMAL SALINE (250 ML)
     Route: 041
     Dates: start: 20210827, end: 20210827
  4. TAXOTERE [Suspect]
     Active Substance: DOCETAXEL
     Indication: Breast cancer female
     Dosage: TAXOTERE (120 MG) + NORMAL SALINE (250 ML)
     Route: 041
     Dates: start: 20210827, end: 20210827
  5. Jinyouli, Xinruibai [Concomitant]
     Indication: Product used for unknown indication
     Route: 058
     Dates: start: 20210828

REACTIONS (2)
  - White blood cell count decreased [Recovered/Resolved]
  - Agranulocytosis [Recovered/Resolved]

NARRATIVE: CASE EVENT DATE: 20210903
